FAERS Safety Report 8297093-0 (Version None)
Quarter: 2012Q2

REPORT INFORMATION
  Report Type: 
  Country: None (occurrence: None)
  Receive Date: 20120416
  Receipt Date: 20120406
  Transmission Date: 20120825
  Serious: Yes (Hospitalization)
  Sender: FDA-Public Use
  Company Number: ACO_29995_2012

PATIENT
  Age: 38 Year
  Sex: Female

DRUGS (2)
  1. AMPYRA [Suspect]
     Indication: PRODUCT USED FOR UNKNOWN INDICATION
     Dosage: 10 MG, BID
     Dates: start: 20110801, end: 20120331
  2. GILENYA [Concomitant]

REACTIONS (4)
  - LOSS OF CONSCIOUSNESS [None]
  - HYPERVENTILATION [None]
  - CONVULSION [None]
  - OXYGEN SATURATION INCREASED [None]
